FAERS Safety Report 5358902-8 (Version None)
Quarter: 2007Q3

REPORT INFORMATION
  Report Type: 
  Country: None (occurrence: None)
  Receive Date: 20070615
  Receipt Date: 20070608
  Transmission Date: 20080115
  Serious: Yes (Hospitalization)
  Sender: FDA-Public Use
  Company Number: B0285066A

PATIENT
  Age: 68 Year
  Sex: Male

DRUGS (4)
  1. RANITIDINE HCL [Suspect]
     Dosage: 50MG PER DAY
     Route: 042
     Dates: start: 20020926, end: 20021002
  2. ACETAMINOPHEN [Suspect]
     Route: 042
     Dates: start: 20020926, end: 20021004
  3. FRAXIPARINE [Suspect]
     Route: 042
     Dates: start: 20020924, end: 20021011
  4. SPASFON [Suspect]
     Route: 042
     Dates: start: 20020926, end: 20021004

REACTIONS (3)
  - EOSINOPHILIA [None]
  - GENERALISED ERYTHEMA [None]
  - PRURITUS [None]
